FAERS Safety Report 22144093 (Version 1)
Quarter: 2023Q1

REPORT INFORMATION
  Report Type: Spontaneous
  Country: US (occurrence: US)
  Receive Date: 20230327
  Receipt Date: 20230327
  Transmission Date: 20230418
  Serious: Yes (Hospitalization)
  Sender: FDA-Public Use
  Company Number: US-drreddys-LIT/USA/23/0162792

PATIENT
  Age: 64 Year
  Sex: Male

DRUGS (1)
  1. AMLODIPINE MALEATE [Suspect]
     Active Substance: AMLODIPINE MALEATE
     Indication: Acute myocardial infarction

REACTIONS (1)
  - Drug ineffective for unapproved indication [Unknown]
